FAERS Safety Report 6691511-7 (Version None)
Quarter: 2010Q2

REPORT INFORMATION
  Report Type: 
  Country: None (occurrence: None)
  Receive Date: 20100422
  Receipt Date: 20100414
  Transmission Date: 20101027
  Serious: Yes (Hospitalization, Other)
  Sender: FDA-Public Use
  Company Number: US-BAYER-201018110NA

PATIENT
  Age: 67 Year
  Sex: Female
  Weight: 60 kg

DRUGS (34)
  1. SORAFENIB [Suspect]
     Indication: GALLBLADDER CANCER STAGE IV
     Dosage: TOTAL DAILY DOSE: 800 MG  UNIT DOSE: 200 MG
     Route: 048
     Dates: start: 20100205
  2. SORAFENIB [Suspect]
     Dosage: TOTAL DAILY DOSE: 800 MG  UNIT DOSE: 200 MG
     Route: 048
     Dates: start: 20100226
  3. SORAFENIB [Suspect]
     Dosage: TOTAL DAILY DOSE: 800 MG  UNIT DOSE: 200 MG
     Route: 048
     Dates: start: 20100319
  4. SORAFENIB [Suspect]
     Dosage: TOTAL DAILY DOSE: 800 MG  UNIT DOSE: 200 MG
     Route: 048
     Dates: start: 20100409
  5. CISPLATIN [Suspect]
     Indication: GALLBLADDER CANCER STAGE IV
     Dosage: TOTAL DAILY DOSE: 39 MG  UNIT DOSE: 25 MG/M2
     Route: 042
     Dates: start: 20100205, end: 20100205
  6. CISPLATIN [Suspect]
     Dosage: TOTAL DAILY DOSE: 39 MG  UNIT DOSE: 25 MG/M2
     Route: 042
     Dates: start: 20100212, end: 20100212
  7. CISPLATIN [Suspect]
     Dosage: TOTAL DAILY DOSE: 39 MG  UNIT DOSE: 25 MG/M2
     Route: 042
     Dates: start: 20100305, end: 20100305
  8. CISPLATIN [Suspect]
     Dosage: TOTAL DAILY DOSE: 39 MG  UNIT DOSE: 25 MG/M2
     Route: 042
     Dates: start: 20100226, end: 20100226
  9. CISPLATIN [Suspect]
     Dosage: TOTAL DAILY DOSE: 39 MG  UNIT DOSE: 25 MG/M2
     Route: 042
     Dates: start: 20100326, end: 20100326
  10. CISPLATIN [Suspect]
     Dosage: TOTAL DAILY DOSE: 39 MG  UNIT DOSE: 25 MG/M2
     Route: 042
     Dates: start: 20100409, end: 20100409
  11. CISPLATIN [Suspect]
     Dosage: TOTAL DAILY DOSE: 39 MG  UNIT DOSE: 25 MG/M2
     Route: 042
     Dates: start: 20100319, end: 20100319
  12. GEMCITABINE HCL [Suspect]
     Indication: GALLBLADDER CANCER STAGE IV
     Dosage: TOTAL DAILY DOSE: 1600 MG  UNIT DOSE: 1000 MG/M2
     Route: 042
     Dates: start: 20100319, end: 20100319
  13. GEMCITABINE HCL [Suspect]
     Dosage: TOTAL DAILY DOSE: 1600 MG  UNIT DOSE: 1000 MG/M2
     Route: 042
     Dates: start: 20100326, end: 20100326
  14. GEMCITABINE HCL [Suspect]
     Dosage: TOTAL DAILY DOSE: 1600 MG  UNIT DOSE: 1000 MG/M2
     Route: 042
     Dates: start: 20100409, end: 20100409
  15. GEMCITABINE HCL [Suspect]
     Dosage: TOTAL DAILY DOSE: 1600 MG  UNIT DOSE: 1000 MG/M2
     Route: 042
     Dates: start: 20100226, end: 20100226
  16. GEMCITABINE HCL [Suspect]
     Dosage: TOTAL DAILY DOSE: 1600 MG  UNIT DOSE: 1000 MG/M2
     Route: 042
     Dates: start: 20100305, end: 20100305
  17. GEMCITABINE HCL [Suspect]
     Dosage: TOTAL DAILY DOSE: 1600 MG  UNIT DOSE: 1000 MG/M2
     Route: 042
     Dates: start: 20100205, end: 20100205
  18. PEGFILGRASTIM [Suspect]
     Indication: GALLBLADDER CANCER STAGE IV
     Dosage: TOTAL DAILY DOSE: 6 MG
     Route: 058
     Dates: start: 20090919, end: 20090919
  19. ULTRASE MT18 [Concomitant]
     Dosage: WITH EACH MEAL
     Route: 048
     Dates: start: 20100101
  20. FENTANYL [Concomitant]
     Dosage: TOTAL DAILY DOSE: 12 ?G
     Route: 062
  21. PRILOSEC [Concomitant]
     Dosage: TOTAL DAILY DOSE: 20 MG
     Route: 048
  22. BEST ENZYME YET [Concomitant]
     Dosage: 1 AFTER EACH MEAL
     Route: 048
  23. PERCOCET [Concomitant]
     Dosage: 5/325 AT NIGHT
     Route: 048
  24. ACAI JUICE [Concomitant]
     Dosage: TOTAL DAILY DOSE: 115 G
     Route: 048
  25. FRAGMIN [Concomitant]
     Dosage: TOTAL DAILY DOSE: 5 ML
  26. DEXAMETHASONE [Concomitant]
     Indication: NAUSEA
     Dosage: POST CHEMOTHERAPY
     Route: 048
  27. APREPITANT [Concomitant]
     Dosage: POST CHEMOTHERAPY
     Route: 048
  28. ATENOLOL [Concomitant]
     Dosage: TOTAL DAILY DOSE: 25 MG
     Route: 048
  29. OXYCODONE [Concomitant]
     Indication: PAIN
     Route: 048
  30. EYE DROPS [Concomitant]
  31. NASAL SALINE SOLUTION [Concomitant]
  32. CRANBERRY JUICE [Concomitant]
     Dosage: 1 SMALL EXPRESSO CUP
     Route: 048
  33. CAMOMILE TEA [Concomitant]
  34. CIPRO [Concomitant]
     Dosage: TOTAL DAILY DOSE: 1000 MG

REACTIONS (2)
  - PULMONARY EMBOLISM [None]
  - THROMBOSIS [None]
